FAERS Safety Report 10075429 (Version 1)
Quarter: 2014Q1

REPORT INFORMATION
  Report Type: Spontaneous
  Country: US (occurrence: None)
  Receive Date: 20140318
  Receipt Date: 20140318
  Transmission Date: 20141002
  Serious: No
  Sender: FDA-Public Use
  Company Number: 2014-00021

PATIENT
  Age: 63 Year
  Sex: Female
  Weight: 58.97 kg

DRUGS (3)
  1. ZICAM ULTRA COLD REMEDY RAPIDMELTS [Suspect]
     Indication: NASOPHARYNGITIS
     Dosage: 1 TABLET
     Route: 048
     Dates: start: 20140130
  2. ZICAM ULTRA COLD REMEDY RAPIDMELTS [Suspect]
     Indication: INFLUENZA
     Dosage: 1 TABLET
     Route: 048
     Dates: start: 20140130
  3. HYDROCHLOROTHIAZIDE [Concomitant]

REACTIONS (2)
  - Ageusia [None]
  - Dysgeusia [None]
